FAERS Safety Report 13657757 (Version 1)
Quarter: 2017Q2

REPORT INFORMATION
  Report Type: Spontaneous
  Country: CN (occurrence: CN)
  Receive Date: 20170615
  Receipt Date: 20170615
  Transmission Date: 20170830
  Serious: Yes (Other)
  Sender: FDA-Public Use
  Company Number: CN-ROCHE-1949966

PATIENT
  Age: 81 Year
  Sex: Male
  Weight: 65 kg

DRUGS (2)
  1. SODIUM CHLORIDE. [Concomitant]
     Active Substance: SODIUM CHLORIDE
     Route: 041
     Dates: start: 20170227, end: 20170227
  2. MABTHERA [Suspect]
     Active Substance: RITUXIMAB
     Indication: LYMPHOCYTIC LYMPHOMA
     Route: 041
     Dates: start: 20170227, end: 20170227

REACTIONS (2)
  - Chills [Recovering/Resolving]
  - Asphyxia [Recovering/Resolving]

NARRATIVE: CASE EVENT DATE: 20170227
